FAERS Safety Report 7419620-5 (Version None)
Quarter: 2011Q2

REPORT INFORMATION
  Report Type: 
  Country: None (occurrence: None)
  Receive Date: 20110406
  Receipt Date: 20110323
  Transmission Date: 20111010
  Serious: Yes (Other)
  Sender: FDA-Public Use
  Company Number: 029897

PATIENT
  Age: 14 Year
  Sex: Male

DRUGS (3)
  1. VALPROIC ACID [Concomitant]
  2. KEPPRA [Suspect]
     Indication: COMPLEX PARTIAL SEIZURES
     Dosage: 20 MG/KG BID ORAL
     Route: 048
  3. VIGABATRIN [Concomitant]

REACTIONS (2)
  - HOSTILITY [None]
  - PSYCHOMOTOR HYPERACTIVITY [None]
